FAERS Safety Report 7706503-6 (Version None)
Quarter: 2011Q3

REPORT INFORMATION
  Report Type: 
  Country: None (occurrence: None)
  Receive Date: 20110802
  Receipt Date: 20110706
  Transmission Date: 20111222
  Serious: Yes (Other)
  Sender: FDA-Public Use
  Company Number: AUR-APL-2011-04126

PATIENT
  Age: 50 Year
  Sex: Female

DRUGS (9)
  1. MIRAPEX [Concomitant]
  2. ATIVAN [Concomitant]
  3. RISPERIDONE [Suspect]
     Indication: PRODUCT USED FOR UNKNOWN INDICATION
     Dosage: (1.5 MG)
  4. CYMBALTA [Concomitant]
  5. LAMICTAL [Concomitant]
  6. AMBIEN [Concomitant]
  7. GEODON [Suspect]
     Indication: PRODUCT USED FOR UNKNOWN INDICATION
     Dosage: (320 MG)
  8. TRAZODONE HCL [Concomitant]
  9. PROVIGIL [Concomitant]

REACTIONS (1)
  - TARDIVE DYSKINESIA [None]
